FAERS Safety Report 21214254 (Version 1)
Quarter: 2022Q3

REPORT INFORMATION
  Report Type: Other
  Country: CA (occurrence: CA)
  Receive Date: 20220816
  Receipt Date: 20220816
  Transmission Date: 20221026
  Serious: Yes (Hospitalization, Congenital Anomaly, Other)
  Sender: FDA-Public Use
  Company Number: CA-APOTEX-2022AP010908

PATIENT

DRUGS (1)
  1. RAMIPRIL [Suspect]
     Active Substance: RAMIPRIL
     Indication: Hypertension
     Dosage: UNK
     Route: 064

REACTIONS (9)
  - Congenital musculoskeletal disorder of skull [Not Recovered/Not Resolved]
  - Foetal disorder [Not Recovered/Not Resolved]
  - Foetal exposure during pregnancy [Not Recovered/Not Resolved]
  - Kidney fibrosis [Not Recovered/Not Resolved]
  - Limb deformity [Not Recovered/Not Resolved]
  - Renal tubular disorder [Not Recovered/Not Resolved]
  - Renal vessel congenital anomaly [Not Recovered/Not Resolved]
  - Renal vessel disorder [Not Recovered/Not Resolved]
  - Ventricular septal defect [Not Recovered/Not Resolved]
